FAERS Safety Report 5398032-2 (Version None)
Quarter: 2007Q3

REPORT INFORMATION
  Report Type: 
  Country: None (occurrence: None)
  Receive Date: 20070726
  Receipt Date: 20070717
  Transmission Date: 20080115
  Serious: Yes (Other)
  Sender: FDA-Public Use
  Company Number: US-GENENTECH-243850

PATIENT
  Sex: Female
  Weight: 88.435 kg

DRUGS (9)
  1. XOLAIR [Suspect]
     Indication: ASTHMA
     Dosage: 150 MG, Q4W
     Route: 058
     Dates: start: 20070221
  2. ADVAIR DISKUS 100/50 [Concomitant]
     Indication: DRUG USE FOR UNKNOWN INDICATION
     Dosage: 500 UNK, UNK
     Dates: start: 20050101
  3. SINGULAIR [Concomitant]
     Indication: DRUG USE FOR UNKNOWN INDICATION
     Dosage: 10 MG, UNK
     Dates: start: 20050101
  4. ALBUTEROL [Concomitant]
     Indication: DRUG USE FOR UNKNOWN INDICATION
     Dosage: UNK, PRN
  5. LO/OVRAL [Concomitant]
     Indication: DRUG USE FOR UNKNOWN INDICATION
  6. PREVACID [Concomitant]
     Indication: DRUG USE FOR UNKNOWN INDICATION
     Dosage: 2 UNK, UNK
  7. AMITIZA [Concomitant]
     Indication: DRUG USE FOR UNKNOWN INDICATION
  8. NARDIL [Concomitant]
     Indication: DRUG USE FOR UNKNOWN INDICATION
  9. ATIVAN [Concomitant]
     Indication: DRUG USE FOR UNKNOWN INDICATION

REACTIONS (1)
  - ASTHMA [None]
